FAERS Safety Report 21396657 (Version 5)
Quarter: 2022Q4

REPORT INFORMATION
  Report Type: Report from Study
  Country: GB (occurrence: GB)
  Receive Date: 20220930
  Receipt Date: 20221107
  Transmission Date: 20230113
  Serious: Yes (Hospitalization, Other)
  Sender: FDA-Public Use
  Company Number: GB-BRISTOL-MYERS SQUIBB COMPANY-2022-114141

PATIENT
  Age: 69 Year
  Sex: Female
  Weight: 71.7 kg

DRUGS (2)
  1. PACLITAXEL [Suspect]
     Active Substance: PACLITAXEL
     Indication: Pancreatic carcinoma metastatic
     Dosage: CYCLE 10 DAY 8, FREQUENCY AS PER THE PROTOCOL
     Route: 042
     Dates: start: 20211209, end: 20220922
  2. GEMCITABINE [Suspect]
     Active Substance: GEMCITABINE
     Indication: Pancreatic carcinoma metastatic
     Dosage: CYCLE 10 DAY 8, FREQUENCY AS PER THE PROTOCOL
     Route: 042
     Dates: start: 20211209, end: 20220922

REACTIONS (4)
  - Constipation [Recovered/Resolved]
  - Diverticulitis [Recovered/Resolved with Sequelae]
  - Urinary tract infection [Recovered/Resolved]
  - Abdominal infection [Recovered/Resolved]

NARRATIVE: CASE EVENT DATE: 20220924
